FAERS Safety Report 8515979-6 (Version None)
Quarter: 2012Q3

REPORT INFORMATION
  Report Type: 
  Country: None (occurrence: None)
  Receive Date: 20120717
  Receipt Date: 20120713
  Transmission Date: 20120928
  Serious: Yes (Other)
  Sender: FDA-Public Use
  Company Number: US-PFIZER INC-2012169669

PATIENT
  Sex: Female
  Weight: 76 kg

DRUGS (3)
  1. LORAZEPAM [Concomitant]
     Dosage: 1 MG, 2X/DAY
  2. PREMARIN [Suspect]
     Dosage: 0.45 MG, 1X/DAY
     Route: 048
     Dates: start: 20120201, end: 20120101
  3. PREMARIN [Suspect]
     Indication: HORMONE REPLACEMENT THERAPY
     Dosage: 0.45 MG, 1X/DAY
     Route: 048
     Dates: start: 19960101, end: 20110101

REACTIONS (5)
  - BLOOD CHOLESTEROL INCREASED [None]
  - BREAST CYST [None]
  - GLUCOSE TOLERANCE IMPAIRED [None]
  - BREAST MASS [None]
  - BLOOD PRESSURE INCREASED [None]
